FAERS Safety Report 11091422 (Version 1)
Quarter: 2015Q2

REPORT INFORMATION
  Report Type: Spontaneous
  Country: US (occurrence: None)
  Receive Date: 20150504
  Receipt Date: 20150504
  Transmission Date: 20150821
  Serious: Yes (Hospitalization, Disabling)
  Sender: FDA-Public Use
  Company Number: None

PATIENT
  Age: 43 Year
  Sex: Female
  Weight: 22.68 kg

DRUGS (6)
  1. ZOCOR [Concomitant]
     Active Substance: SIMVASTATIN
  2. FLAGYL [Suspect]
     Active Substance: METRONIDAZOLE\METRONIDAZOLE HYDROCHLORIDE
     Route: 048
     Dates: start: 20120302, end: 20120316
  3. ASPERIN [Concomitant]
  4. PLAVIX [Concomitant]
     Active Substance: CLOPIDOGREL BISULFATE
  5. FLAGYL [Suspect]
     Active Substance: METRONIDAZOLE\METRONIDAZOLE HYDROCHLORIDE
     Indication: DIVERTICULITIS
     Route: 048
     Dates: start: 20120302, end: 20120316
  6. FLAGYL [Suspect]
     Active Substance: METRONIDAZOLE\METRONIDAZOLE HYDROCHLORIDE
     Indication: CYSTITIS
     Route: 048
     Dates: start: 20120302, end: 20120316

REACTIONS (10)
  - Cerebrovascular accident [None]
  - Toxicity to various agents [None]
  - Abdominal rigidity [None]
  - Accidental overdose [None]
  - Clostridium difficile infection [None]
  - Dysarthria [None]
  - Blood brain barrier defect [None]
  - Nosocomial infection [None]
  - Visual impairment [None]
  - Impaired work ability [None]

NARRATIVE: CASE EVENT DATE: 20120302
